FAERS Safety Report 9655106 (Version 1)
Quarter: 2013Q4

REPORT INFORMATION
  Report Type: Spontaneous
  Country: US (occurrence: US)
  Receive Date: 20131029
  Receipt Date: 20131029
  Transmission Date: 20140711
  Serious: No
  Sender: FDA-Public Use
  Company Number: US-PURDUE-USA-2012-0094399

PATIENT
  Age: 56 Year
  Sex: Female

DRUGS (2)
  1. OXYCONTIN (NDA 22-272) [Suspect]
     Indication: PRODUCT USED FOR UNKNOWN INDICATION
     Dosage: 30 MG, AM
     Route: 048
     Dates: start: 2006
  2. OXYCONTIN (NDA 22-272) [Suspect]
     Dosage: 20 MG, PM
     Route: 048
     Dates: start: 2006

REACTIONS (4)
  - Drug withdrawal syndrome [Unknown]
  - Tremor [Recovered/Resolved]
  - Gastrointestinal pain [Recovered/Resolved]
  - Drug effect decreased [Unknown]
